FAERS Safety Report 25063851 (Version 1)
Quarter: 2025Q1

REPORT INFORMATION
  Report Type: Spontaneous
  Country: GB (occurrence: GB)
  Receive Date: 20250311
  Receipt Date: 20250311
  Transmission Date: 20250409
  Serious: Yes (Hospitalization)
  Sender: PTC THERAPEUTICS
  Company Number: GB-PTC THERAPEUTICS INC.-GB-2023PTC001518

PATIENT
  Age: 12 Year
  Sex: Female

DRUGS (21)
  1. ELADOCAGENE EXUPARVOVEC [Suspect]
     Active Substance: ELADOCAGENE EXUPARVOVEC
     Indication: Aromatic L-amino acid decarboxylase deficiency
     Route: 065
     Dates: start: 20230913, end: 20230913
  2. AMANTADINE [Concomitant]
     Active Substance: AMANTADINE
     Indication: Product used for unknown indication
     Dosage: 72 MILLIGRAM, BID
  3. AZITHROMYCIN [Concomitant]
     Active Substance: AZITHROMYCIN
     Indication: Product used for unknown indication
     Dosage: 240 MILLIGRAM, QD
     Route: 048
  4. BUDESONIDE [Concomitant]
     Active Substance: BUDESONIDE
     Indication: Product used for unknown indication
     Dosage: 500 MICROGRAM, BID NEBULISATION
  5. CARBOXYMETHYLCELLULOSE [Concomitant]
     Active Substance: CARBOXYMETHYLCELLULOSE
     Indication: Product used for unknown indication
     Dosage: 1 DROP, BOTH EYES, EVERY 6 HRS
  6. CLONIDINE [Concomitant]
     Active Substance: CLONIDINE
     Indication: Product used for unknown indication
     Dosage: 1 PATCH, TRANSDERMAL, EVERY 7 DAYS
  7. CLONIDINE [Concomitant]
     Active Substance: CLONIDINE
     Route: 048
  8. DERMOL [Concomitant]
     Active Substance: BENZALKONIUM CHLORIDE\CHLORHEXIDINE HYDROCHLORIDE\ISOPROPYL MYRISTATE\PARAFFIN
     Indication: Product used for unknown indication
     Dosage: UNK, QD
     Route: 061
  9. LEUCOVORIN [Concomitant]
     Active Substance: LEUCOVORIN\LEUCOVORIN CALCIUM
     Indication: Product used for unknown indication
     Dosage: 15 MILLIGRAM, QD
  10. GABAPENTIN [Concomitant]
     Active Substance: GABAPENTIN
     Indication: Product used for unknown indication
     Dosage: 200 MILLIGRAM, BID
  11. GABAPENTIN [Concomitant]
     Active Substance: GABAPENTIN
  12. GLYCOPYRROLATE [Concomitant]
     Active Substance: GLYCOPYRROLATE
     Indication: Product used for unknown indication
     Dosage: 600 MICROGRAM, BID
  13. LANSOPRAZOLE [Concomitant]
     Active Substance: LANSOPRAZOLE
     Indication: Product used for unknown indication
     Dosage: 15 MILLIGRAM, BID
     Route: 048
  14. POLYETHYLENE GLYCOLS [Concomitant]
     Active Substance: POLYETHYLENE GLYCOLS
     Indication: Product used for unknown indication
     Dosage: 1 SACHET, BID
  15. MELATONIN [Concomitant]
     Active Substance: MELATONIN
     Indication: Product used for unknown indication
     Dosage: 8 MILLIGRAM, NIGHTLY
  16. CHLORAL HYDRATE [Concomitant]
     Active Substance: CHLORAL HYDRATE
     Indication: Product used for unknown indication
     Dosage: 240 MILLIGRAM, QID PRN
  17. GELCLAIR [ENOXOLONE;HYALURONATE SODIUM;POVIDONE] [Concomitant]
     Indication: Product used for unknown indication
  18. LACTULOSE [Concomitant]
     Active Substance: LACTULOSE
     Indication: Product used for unknown indication
     Dosage: 7.5 MILLIGRAM, BID PRN
  19. SENNA [Concomitant]
     Active Substance: SENNOSIDES
     Indication: Product used for unknown indication
     Dosage: 7.5 MILLIGRAM, QD PRN
  20. SODIUM CHLORIDE [Concomitant]
     Active Substance: SODIUM CHLORIDE
     Indication: Product used for unknown indication
  21. METRONIDAZOLE [Concomitant]
     Active Substance: METRONIDAZOLE
     Dosage: 180 MILLIGRAM, TID
     Route: 042

REACTIONS (2)
  - Gastrointestinal haemorrhage [Recovered/Resolved]
  - Diarrhoea haemorrhagic [Recovered/Resolved]

NARRATIVE: CASE EVENT DATE: 20231101
